FAERS Safety Report 4866528-5 (Version None)
Quarter: 2005Q4

REPORT INFORMATION
  Report Type: 
  Country: None (occurrence: None)
  Receive Date: 20051221
  Receipt Date: 20051207
  Transmission Date: 20060501
  Serious: Yes (Hospitalization)
  Sender: FDA-Public Use
  Company Number: MEDI-0003922

PATIENT
  Sex: Male

DRUGS (1)
  1. ETHYOL [Suspect]
     Indication: NEOPLASM MALIGNANT
     Dosage: 3 IN 1 WK, SUBCUTANEOUS
     Route: 058

REACTIONS (6)
  - CHILLS [None]
  - DEHYDRATION [None]
  - DIZZINESS [None]
  - HYPERHIDROSIS [None]
  - RASH [None]
  - VOMITING [None]
